FAERS Safety Report 8358736-6 (Version None)
Quarter: 2012Q2

REPORT INFORMATION
  Report Type: 
  Country: None (occurrence: None)
  Receive Date: 20120514
  Receipt Date: 20120425
  Transmission Date: 20120825
  Serious: Yes (Other)
  Sender: FDA-Public Use
  Company Number: US-BAXTER-2012BAX004022

PATIENT
  Sex: Male

DRUGS (3)
  1. EXTRANEAL [Suspect]
     Indication: PERITONEAL DIALYSIS
     Route: 033
  2. DIANEAL [Suspect]
     Indication: PERITONEAL DIALYSIS
     Route: 033
     Dates: start: 20110706, end: 20120424
  3. DIANEAL [Suspect]
     Route: 033
     Dates: start: 20120424

REACTIONS (3)
  - GANGRENE [None]
  - ASTHENIA [None]
  - QUALITY OF LIFE DECREASED [None]
